FAERS Safety Report 21930360 (Version 1)
Quarter: 2023Q1

REPORT INFORMATION
  Report Type: Spontaneous
  Country: US (occurrence: US)
  Receive Date: 20230131
  Receipt Date: 20230131
  Transmission Date: 20230418
  Serious: Yes (Other)
  Sender: FDA-Public Use
  Company Number: US-ABBVIE-4289460

PATIENT
  Sex: Female

DRUGS (1)
  1. LUPRON [Suspect]
     Active Substance: LEUPROLIDE ACETATE
     Indication: Endometriosis
     Route: 065

REACTIONS (5)
  - Fibrocystic breast disease [Unknown]
  - Endometriosis [Unknown]
  - Multiple fractures [Unknown]
  - Arthralgia [Unknown]
  - Uterine disorder [Unknown]
